FAERS Safety Report 8287658-4 (Version None)
Quarter: 2012Q2

REPORT INFORMATION
  Report Type: 
  Country: None (occurrence: None)
  Receive Date: 20120416
  Receipt Date: 20120411
  Transmission Date: 20120825
  Serious: Yes (Hospitalization)
  Sender: FDA-Public Use
  Company Number: PHHY2012DE031020

PATIENT
  Sex: Male

DRUGS (6)
  1. MOXONIDINE [Concomitant]
  2. RAMIPRIL [Concomitant]
  3. SIMVASTATIN [Concomitant]
  4. AMLODIPINE [Concomitant]
  5. RASILEZ [Suspect]
     Dosage: 150 MG, BID
     Route: 048
     Dates: start: 20110101, end: 20120301
  6. SPIRONOLACTONE [Concomitant]

REACTIONS (3)
  - PANCREATIC DISORDER [None]
  - ENDOCARDITIS [None]
  - MALAISE [None]
